FAERS Safety Report 5515966-6 (Version None)
Quarter: 2007Q4

REPORT INFORMATION
  Report Type: 
  Country: None (occurrence: None)
  Receive Date: 20071114
  Receipt Date: 20061102
  Transmission Date: 20080405
  Serious: No
  Sender: FDA-Public Use
  Company Number: A0625789A

PATIENT
  Age: 45 Year

DRUGS (1)
  1. COMMIT [Suspect]
     Dates: start: 20061019, end: 20061031

REACTIONS (4)
  - ABDOMINAL DISTENSION [None]
  - CONSTIPATION [None]
  - DYSPEPSIA [None]
  - FLATULENCE [None]
